FAERS Safety Report 15742763 (Version 1)
Quarter: 2018Q4

REPORT INFORMATION
  Report Type: Spontaneous
  Country: GB (occurrence: GB)
  Receive Date: 20181219
  Receipt Date: 20181219
  Transmission Date: 20190205
  Serious: Yes (Life-Threatening, Hospitalization)
  Sender: FDA-Public Use
  Company Number: GB-MYLANLABS-2018M1095114

PATIENT
  Age: 30 Year
  Sex: Male
  Weight: 110 kg

DRUGS (2)
  1. LINEZOLID. [Suspect]
     Active Substance: LINEZOLID
     Indication: SEPSIS
     Dosage: 1200 MILLIGRAM, QD
     Route: 042
     Dates: start: 20180114, end: 20180318
  2. CASPOFUNGIN [Suspect]
     Active Substance: CASPOFUNGIN
     Indication: PRODUCT USED FOR UNKNOWN INDICATION
     Dosage: 70 MILLIGRAM, QD
     Dates: start: 20180115, end: 20180118

REACTIONS (4)
  - Muscular weakness [Recovering/Resolving]
  - Asthenia [Recovered/Resolved]
  - Acute kidney injury [Recovered/Resolved]
  - Myoglobinuria [Recovered/Resolved]

NARRATIVE: CASE EVENT DATE: 20180117
